FAERS Safety Report 14814555 (Version 1)
Quarter: 2018Q2

REPORT INFORMATION
  Report Type: Spontaneous
  Country: US (occurrence: US)
  Receive Date: 20180417
  Receipt Date: 20180417
  Transmission Date: 20180711
  Serious: No
  Sender: FDA-Public Use
  Company Number: None

PATIENT
  Age: 75 Year
  Sex: Female
  Weight: 90.72 kg

DRUGS (12)
  1. EZETIMIBE ZETIA [Suspect]
     Active Substance: EZETIMIBE
     Indication: HYPOLIPIDAEMIA
     Dosage: ?          QUANTITY:1 DF DOSAGE FORM;?
     Route: 048
     Dates: start: 20180208, end: 20180210
  2. BOTOX INJ. [Concomitant]
  3. MVI [Concomitant]
     Active Substance: VITAMINS
  4. LUTEIN [Concomitant]
     Active Substance: LUTEIN
  5. ZEAXANTHIN [Concomitant]
     Active Substance: ZEAXANTHIN
  6. EZETIMIBE ZETIA [Suspect]
     Active Substance: EZETIMIBE
     Indication: LOW DENSITY LIPOPROTEIN INCREASED
     Dosage: ?          QUANTITY:1 DF DOSAGE FORM;?
     Route: 048
     Dates: start: 20180208, end: 20180210
  7. PRIMIDONE. [Concomitant]
     Active Substance: PRIMIDONE
  8. CYMBALTA [Concomitant]
     Active Substance: DULOXETINE HYDROCHLORIDE
  9. VITAMIN D [Concomitant]
     Active Substance: CHOLECALCIFEROL
  10. EZETIMIBE ZETIA [Suspect]
     Active Substance: EZETIMIBE
     Indication: HIGH DENSITY LIPOPROTEIN DECREASED
     Dosage: ?          QUANTITY:1 DF DOSAGE FORM;?
     Route: 048
     Dates: start: 20180208, end: 20180210
  11. MELOXICAM. [Concomitant]
     Active Substance: MELOXICAM
  12. PROPANOLOL [Concomitant]
     Active Substance: PROPRANOLOL HYDROCHLORIDE

REACTIONS (7)
  - Depression [None]
  - Weight increased [None]
  - Sinus disorder [None]
  - Fatigue [None]
  - Hypersomnia [None]
  - Oropharyngeal pain [None]
  - Dizziness [None]

NARRATIVE: CASE EVENT DATE: 20180208
